FAERS Safety Report 6810540-3 (Version None)
Quarter: 2010Q2

REPORT INFORMATION
  Report Type: 
  Country: None (occurrence: None)
  Receive Date: 20100630
  Receipt Date: 20100622
  Transmission Date: 20101027
  Serious: Yes (Hospitalization)
  Sender: FDA-Public Use
  Company Number: VN-BAXTER-2010BH015862

PATIENT
  Sex: Female

DRUGS (1)
  1. DIANEAL [Suspect]
     Indication: PERITONEAL DIALYSIS
     Route: 033
     Dates: start: 20070801, end: 20100601

REACTIONS (2)
  - FUNGAL PERITONITIS [None]
  - MEDICAL DEVICE COMPLICATION [None]
